FAERS Safety Report 4920724-7 (Version None)
Quarter: 2006Q1

REPORT INFORMATION
  Report Type: 
  Country: None (occurrence: None)
  Receive Date: 20060223
  Receipt Date: 20060210
  Transmission Date: 20060701
  Serious: Yes (Other)
  Sender: FDA-Public Use
  Company Number: US-BOEHRINGER INGELHEIM PHARMACEUTICALS, INC.-2006-DE-00753GD

PATIENT
  Sex: Female

DRUGS (6)
  1. NEVIRAPINE [Suspect]
     Indication: HUMAN IMMUNODEFICIENCY VIRUS TRANSMISSION
     Route: 015
  2. NEVIRAPINE [Suspect]
     Indication: PROPHYLAXIS
     Dosage: 4 MG/KG DAILY FOR 14 DAYS, THEN 7 MG/KG BID
     Route: 048
  3. ZIDOVUDINE [Suspect]
     Indication: HUMAN IMMUNODEFICIENCY VIRUS TRANSMISSION
     Route: 015
  4. ZIDOVUDINE [Suspect]
     Indication: PROPHYLAXIS
     Route: 048
  5. LAMIVUDINE [Suspect]
     Indication: HUMAN IMMUNODEFICIENCY VIRUS TRANSMISSION
     Route: 048
  6. LAMIVUDINE [Suspect]
     Indication: PROPHYLAXIS

REACTIONS (4)
  - CAESAREAN SECTION [None]
  - DRUG EXPOSURE DURING PREGNANCY [None]
  - HUMAN IMMUNODEFICIENCY VIRUS TRANSMISSION [None]
  - VIRAL MUTATION IDENTIFIED [None]
